FAERS Safety Report 24553229 (Version 2)
Quarter: 2024Q4

REPORT INFORMATION
  Report Type: Spontaneous
  Country: PL (occurrence: PL)
  Receive Date: 20241028
  Receipt Date: 20241101
  Transmission Date: 20250114
  Serious: Yes (Death, Other)
  Sender: SANDOZ
  Company Number: PL-ROCHE-10000102699

PATIENT
  Age: 72 Year
  Sex: Male

DRUGS (14)
  1. BENDAMUSTINE [Suspect]
     Active Substance: BENDAMUSTINE
     Indication: Lymphocytic leukaemia
     Dosage: RITUXIMAB/BEDNAMUSTINE TWICE
     Route: 065
     Dates: end: 202209
  2. CYCLOPHOSPHAMIDE\DOXORUBICIN\PREDNISONE\VINCRISTINE [Suspect]
     Active Substance: CYCLOPHOSPHAMIDE\DOXORUBICIN\PREDNISONE\VINCRISTINE
     Indication: Product used for unknown indication
     Dosage: R-CHOP
     Route: 065
  3. CYCLOPHOSPHAMIDE [Suspect]
     Active Substance: CYCLOPHOSPHAMIDE
     Indication: Lymphocytic leukaemia
     Dosage: UNK
     Route: 065
     Dates: end: 202209
  4. DOXORUBICIN [Suspect]
     Active Substance: DOXORUBICIN
     Indication: Lymphocytic leukaemia
     Dosage: UNK
     Route: 065
     Dates: end: 202209
  5. ERLOTINIB [Suspect]
     Active Substance: ERLOTINIB
     Indication: Lung adenocarcinoma
     Dosage: UNK
     Route: 065
  6. ERLOTINIB [Suspect]
     Active Substance: ERLOTINIB
     Indication: Lung adenocarcinoma stage IV
  7. ERLOTINIB [Suspect]
     Active Substance: ERLOTINIB
     Indication: Lung neoplasm malignant
  8. METHYLPREDNISOLONE [Suspect]
     Active Substance: METHYLPREDNISOLONE
     Indication: Chronic lymphocytic leukaemia
     Dosage: UNK
     Route: 065
  9. METHYLPREDNISOLONE [Suspect]
     Active Substance: METHYLPREDNISOLONE
     Indication: Lung adenocarcinoma stage IV
  10. PREDNISONE [Suspect]
     Active Substance: PREDNISONE
     Indication: Lymphocytic leukaemia
     Dosage: UNK
     Route: 065
     Dates: end: 202209
  11. RITUXIMAB [Suspect]
     Active Substance: RITUXIMAB
     Indication: Chronic lymphocytic leukaemia
     Dosage: RITUXIMAB/BEDNAMUSTINE TWICE
     Route: 065
     Dates: end: 202209
  12. RITUXIMAB [Suspect]
     Active Substance: RITUXIMAB
     Indication: Lung adenocarcinoma stage IV
  13. VENETOCLAX [Suspect]
     Active Substance: VENETOCLAX
     Indication: Lymphocytic leukaemia
     Dosage: VENETOCLAX + RITUXIMAB
     Route: 065
     Dates: end: 202209
  14. VINCRISTINE [Suspect]
     Active Substance: VINCRISTINE
     Indication: Lymphocytic leukaemia
     Dosage: UNK
     Route: 065
     Dates: end: 202209

REACTIONS (9)
  - Infection [Fatal]
  - Dermatitis acneiform [Unknown]
  - Leukocytosis [Unknown]
  - Disease progression [Unknown]
  - Anaemia [Unknown]
  - Acne [Unknown]
  - Drug effective for unapproved indication [Unknown]
  - Therapeutic product effect decreased [Unknown]
  - Off label use [Unknown]
